FAERS Safety Report 13542004 (Version 3)
Quarter: 2017Q3

REPORT INFORMATION
  Report Type: Report from Study
  Country: US (occurrence: US)
  Receive Date: 20170512
  Receipt Date: 20170707
  Transmission Date: 20171127
  Serious: Yes (Disabling, Other)
  Sender: FDA-Public Use
  Company Number: US-ALLERGAN-1718142US

PATIENT
  Age: 85 Year
  Sex: Female

DRUGS (1)
  1. CYCLOSPORINE 0.5MG/ML EML (9054X) [Suspect]
     Active Substance: CYCLOSPORINE
     Indication: DRY EYE

REACTIONS (4)
  - Cerebral haemorrhage [Recovered/Resolved]
  - Eye pain [Recovered/Resolved]
  - Drug dose omission [Unknown]
  - Blindness [Recovered/Resolved]
